FAERS Safety Report 17707837 (Version 1)
Quarter: 2020Q2

REPORT INFORMATION
  Report Type: Other
  Country: US (occurrence: US)
  Receive Date: 20200424
  Receipt Date: 20200424
  Transmission Date: 20200714
  Serious: Yes (Death, Other)
  Sender: FDA-Public Use
  Company Number: US-INTELLIPHARMACEUTICS CORP.-2083121

PATIENT
  Age: 52 Year
  Sex: Female

DRUGS (14)
  1. LACOSAMIDE. [Suspect]
     Active Substance: LACOSAMIDE
     Route: 042
  2. LEVETIRACETAM. [Suspect]
     Active Substance: LEVETIRACETAM
     Route: 042
  3. FOLIC ACID. [Suspect]
     Active Substance: FOLIC ACID
     Route: 065
  4. PHENOBARBITAL. [Suspect]
     Active Substance: PHENOBARBITAL
     Route: 042
  5. FLUOXETINE [Suspect]
     Active Substance: FLUOXETINE HYDROCHLORIDE
     Route: 065
  6. PROPOFOL. [Suspect]
     Active Substance: PROPOFOL
     Route: 042
  7. OXCARBAZEPINE. [Suspect]
     Active Substance: OXCARBAZEPINE
     Route: 050
  8. PRAZOSIN. [Suspect]
     Active Substance: PRAZOSIN
     Route: 065
  9. FELBAMATE. [Suspect]
     Active Substance: FELBAMATE
     Route: 050
  10. CLOBAZAM. [Suspect]
     Active Substance: CLOBAZAM
     Route: 050
  11. QUETIAPINE FUMARATE. [Suspect]
     Active Substance: QUETIAPINE FUMARATE
     Indication: PRODUCT USED FOR UNKNOWN INDICATION
     Route: 065
  12. PAMELOR [Suspect]
     Active Substance: NORTRIPTYLINE HYDROCHLORIDE
  13. DIAZEPAM. [Suspect]
     Active Substance: DIAZEPAM
     Route: 042
  14. MIDAZOLAM. [Suspect]
     Active Substance: MIDAZOLAM
     Route: 042

REACTIONS (5)
  - Tachycardia [Unknown]
  - Toxicity to various agents [Fatal]
  - Generalised tonic-clonic seizure [Unknown]
  - Fall [Unknown]
  - Head injury [Unknown]
